FAERS Safety Report 11852614 (Version 2)
Quarter: 2015Q4

REPORT INFORMATION
  Report Type: Spontaneous
  Country: US (occurrence: US)
  Receive Date: 20151218
  Receipt Date: 20151223
  Transmission Date: 20160305
  Serious: Yes (Hospitalization, Other)
  Sender: FDA-Public Use
  Company Number: US-UNITED THERAPEUTICS-UNT-2015-014436

PATIENT
  Age: 59 Year
  Sex: Male
  Weight: 79.37 kg

DRUGS (4)
  1. LASIX [Concomitant]
     Active Substance: FUROSEMIDE
     Indication: PRODUCT USED FOR UNKNOWN INDICATION
  2. POTASSIUM [Concomitant]
     Active Substance: POTASSIUM
     Indication: PRODUCT USED FOR UNKNOWN INDICATION
  3. TYVASO [Suspect]
     Active Substance: TREPROSTINIL
     Indication: PULMONARY ARTERIAL HYPERTENSION
     Dosage: 18-54 ?G, QID
     Dates: start: 20150618
  4. TYVASO [Suspect]
     Active Substance: TREPROSTINIL
     Dosage: UNK

REACTIONS (10)
  - Localised oedema [Recovered/Resolved]
  - Intestinal obstruction [Unknown]
  - Renal failure [Recovered/Resolved]
  - Substance use [Unknown]
  - Colitis [Unknown]
  - Septic shock [Recovered/Resolved]
  - Gastroenteritis [Recovered/Resolved]
  - Treatment noncompliance [Unknown]
  - Crohn^s disease [Unknown]
  - Therapy cessation [Unknown]

NARRATIVE: CASE EVENT DATE: 2015
